FAERS Safety Report 13643451 (Version 3)
Quarter: 2017Q3

REPORT INFORMATION
  Report Type: Spontaneous
  Country: US (occurrence: US)
  Receive Date: 20170612
  Receipt Date: 20170808
  Transmission Date: 20171127
  Serious: Yes (Hospitalization, Other)
  Sender: FDA-Public Use
  Company Number: US-PFIZER INC-2017254333

PATIENT
  Age: 68 Year
  Sex: Male
  Weight: 90.72 kg

DRUGS (16)
  1. DYMISTA [Concomitant]
     Active Substance: AZELASTINE HYDROCHLORIDE\FLUTICASONE PROPIONATE
     Indication: SINUS DISORDER
     Dosage: MAYBE ONCE A WEEK
     Route: 045
     Dates: start: 2016
  2. CARVEDILOL. [Concomitant]
     Active Substance: CARVEDILOL
     Indication: BLOOD PRESSURE ABNORMAL
     Dosage: 25 MG, 2X/DAY
     Dates: start: 2009
  3. ASPIRIN. [Concomitant]
     Active Substance: ASPIRIN
     Indication: CARDIAC DISORDER
     Dosage: 81 MG, DAILY
  4. VITAMIN B [Concomitant]
     Active Substance: VITAMIN B
     Indication: HYPOVITAMINOSIS
     Dosage: 1000 MG, MONTHLY
  5. VITAMIN D3 [Concomitant]
     Active Substance: CHOLECALCIFEROL
     Dosage: 5000 IU, 1X/DAY
     Dates: start: 2014
  6. PRAMIPEXOLE. [Concomitant]
     Active Substance: PRAMIPEXOLE
     Dosage: 0.125 MG, 3X/DAY
     Dates: start: 201701, end: 201701
  7. GABAPENTIN. [Suspect]
     Active Substance: GABAPENTIN
     Indication: NEUROPATHY PERIPHERAL
  8. FLUOXETINE [Concomitant]
     Active Substance: FLUOXETINE HYDROCHLORIDE
     Dosage: 10 MG, 1X/DAY
     Dates: start: 2014
  9. GABAPENTIN. [Suspect]
     Active Substance: GABAPENTIN
     Indication: DIABETIC NEUROPATHY
     Dosage: 900 MG, 3X/DAY
     Route: 048
     Dates: start: 20130418, end: 20170103
  10. NOVOLOG [Concomitant]
     Active Substance: INSULIN ASPART
     Indication: DIABETES MELLITUS
     Dosage: UNK (SLIDING SCALE)
     Dates: start: 2012
  11. HYDROCODONE [Concomitant]
     Active Substance: HYDROCODONE
     Indication: PAIN
     Dosage: 1 DF, AS NEEDED (10/325MG TABLET, 1 TABLET AS NEEDED EVERY 5-6 HOURS)
     Dates: start: 2016
  12. DYMISTA [Concomitant]
     Active Substance: AZELASTINE HYDROCHLORIDE\FLUTICASONE PROPIONATE
     Indication: NASAL CONGESTION
     Dosage: 1 DF (137MCG/50MCG), AS NEEDED
     Route: 045
  13. PRAMIPEXOLE. [Concomitant]
     Active Substance: PRAMIPEXOLE
     Dosage: 0.25 MG, 1X/DAY
     Dates: start: 201701
  14. TERAZOSIN [Concomitant]
     Active Substance: TERAZOSIN\TERAZOSIN HYDROCHLORIDE
     Dosage: 5 MG, 1X/DAY
     Dates: start: 201701
  15. AMIODARONE [Concomitant]
     Active Substance: AMIODARONE
     Indication: CARDIAC DISORDER
     Dosage: 200 MG, 1X/DAY
     Dates: start: 2014
  16. VITAMIN C [Concomitant]
     Active Substance: ASCORBIC ACID
     Indication: IMMUNE SYSTEM DISORDER
     Dosage: 500 MG, 2X/DAY

REACTIONS (12)
  - Haematuria [Recovered/Resolved]
  - Neurotoxicity [Unknown]
  - Hemiparesis [Unknown]
  - Urinary retention [Unknown]
  - Drug ineffective for unapproved indication [Unknown]
  - Myoclonus [Unknown]
  - Renal failure [Recovering/Resolving]
  - Renal cyst [Unknown]
  - Rhabdomyolysis [Unknown]
  - Hepatic failure [Unknown]
  - Fall [Unknown]
  - Gait disturbance [Unknown]

NARRATIVE: CASE EVENT DATE: 20130418
